FAERS Safety Report 7783897-7 (Version None)
Quarter: 2011Q3

REPORT INFORMATION
  Report Type: 
  Country: None (occurrence: None)
  Receive Date: 20110928
  Receipt Date: 20110920
  Transmission Date: 20111222
  Serious: Yes (Hospitalization)
  Sender: FDA-Public Use
  Company Number: NL-GLAXOSMITHKLINE-B0675289B

PATIENT
  Sex: Male
  Weight: 60.2 kg

DRUGS (3)
  1. PAZOPANIB [Suspect]
     Indication: NEOPLASM
     Dosage: 1000MG PER DAY
     Route: 048
     Dates: start: 20100831
  2. IFOSFAMIDE [Suspect]
     Indication: NEOPLASM
     Dosage: 3GM2 PER DAY
     Route: 051
     Dates: start: 20100907, end: 20100909
  3. HYDROCHLOROTHIAZIDE [Suspect]
     Indication: HYPERTENSION
     Dosage: 12.5MG PER DAY
     Route: 048
     Dates: start: 20091015

REACTIONS (1)
  - BLOOD CREATININE INCREASED [None]
